FAERS Safety Report 9846126 (Version 1)
Quarter: 2014Q1

REPORT INFORMATION
  Report Type: Spontaneous
  Country: ES (occurrence: None)
  Receive Date: 20140123
  Receipt Date: 20140123
  Transmission Date: 20141002
  Serious: Yes (Other)
  Sender: FDA-Public Use
  Company Number: 2014P1000230

PATIENT
  Age: 53 Year
  Sex: Male

DRUGS (11)
  1. VALPROIC ACID [Suspect]
     Indication: PSYCHIATRIC SYMPTOM
  2. VALPROIC ACID [Suspect]
     Indication: ABNORMAL BEHAVIOUR
  3. MEROPENEM [Suspect]
     Indication: RESPIRATORY TRACT INFECTION
     Route: 042
  4. LITHIUM [Concomitant]
  5. QUETIAPINE [Concomitant]
  6. FLUPHENAZINE DECANOATE [Concomitant]
  7. RISPERIDONE [Concomitant]
  8. METFORMIN [Concomitant]
  9. DIAMICRON [Concomitant]
  10. CLOZAPINE [Concomitant]
  11. HALOPERIDOL [Concomitant]

REACTIONS (7)
  - Respiratory tract infection [None]
  - Drug interaction [None]
  - Anticonvulsant drug level decreased [None]
  - Dysphoria [None]
  - Irritability [None]
  - Delusion [None]
  - Abnormal behaviour [None]
